FAERS Safety Report 25449023 (Version 1)
Quarter: 2025Q2

REPORT INFORMATION
  Report Type: Spontaneous
  Country: US (occurrence: US)
  Receive Date: 20250618
  Receipt Date: 20250618
  Transmission Date: 20250717
  Serious: Yes (Disabling)
  Sender: REGENERON
  Company Number: US-REGENERON PHARMACEUTICALS, INC.-2025-096281

PATIENT
  Sex: Male

DRUGS (8)
  1. PRALUENT [Suspect]
     Active Substance: ALIROCUMAB
     Indication: Blood cholesterol increased
     Dosage: 150 MG, Q2W (EVERY OTHER WEEK)
     Route: 058
  2. EFFIENT [Concomitant]
     Active Substance: PRASUGREL HYDROCHLORIDE
     Indication: Adverse event
  3. METOPROLOL [Concomitant]
     Active Substance: METOPROLOL
     Indication: Adverse event
  4. WEGOVY [Concomitant]
     Active Substance: SEMAGLUTIDE
     Indication: Adverse event
  5. GABAPENTIN [Concomitant]
     Active Substance: GABAPENTIN
     Indication: Adverse event
  6. OXYCODONE [Concomitant]
     Active Substance: OXYCODONE
     Indication: Adverse event
  7. MS CONTIN [Concomitant]
     Active Substance: MORPHINE SULFATE
     Indication: Product used for unknown indication
  8. ASPIRIN [Concomitant]
     Active Substance: ASPIRIN
     Indication: Product used for unknown indication

REACTIONS (2)
  - Disability [Unknown]
  - Adverse event [Unknown]
